FAERS Safety Report 10453060 (Version 3)
Quarter: 2014Q3

REPORT INFORMATION
  Report Type: Spontaneous
  Country: JP (occurrence: JP)
  Receive Date: 20140915
  Receipt Date: 20140925
  Transmission Date: 20150326
  Serious: Yes (Hospitalization)
  Sender: FDA-Public Use
  Company Number: JP-PFIZER INC-2014050879

PATIENT
  Age: 70 Year
  Sex: Female

DRUGS (8)
  1. HORIZON [Suspect]
     Active Substance: DIAZEPAM
     Indication: STATUS EPILEPTICUS
     Dosage: 10 MG AMPULE
     Route: 042
     Dates: start: 20140215, end: 20140215
  2. LEFTOSE [Concomitant]
     Indication: RHINITIS
     Dosage: 30 MG, UNK
     Route: 048
  3. KAKKON-TO [Concomitant]
     Active Substance: HERBS\ROOTS
     Indication: RHINITIS
     Dosage: UNK
     Route: 048
  4. MEILAX [Concomitant]
     Active Substance: ETHYL LOFLAZEPATE
     Indication: INSOMNIA
     Dosage: 2 MG, UNK
     Route: 048
  5. FOSPHENYTOIN SODIUM. [Suspect]
     Active Substance: FOSPHENYTOIN SODIUM
     Indication: STATUS EPILEPTICUS
     Dosage: 1125 MG, 1X/DAY/ 1.5 VIAL
     Route: 042
     Dates: start: 20140215, end: 20140215
  6. MIDAZOLAM [Suspect]
     Active Substance: MIDAZOLAM\MIDAZOLAM HYDROCHLORIDE
     Indication: STATUS EPILEPTICUS
     Dosage: 120 MG AMPULE
     Route: 042
     Dates: start: 20140215, end: 20140217
  7. VITAMEDIN [Suspect]
     Active Substance: CYANOCOBALAMIN\PYRIDOXINE HYDROCHLORIDE\THIAMINE
     Dosage: 1 A AMPULE
     Route: 042
     Dates: start: 20140215, end: 20140217
  8. FOSPHENYTOIN SODIUM. [Suspect]
     Active Substance: FOSPHENYTOIN SODIUM
     Dosage: 375 MG, 1X/DAY/ 0.5 VIAL
     Route: 042
     Dates: start: 20140216, end: 20140216

REACTIONS (4)
  - Aspartate aminotransferase increased [Recovering/Resolving]
  - Disseminated intravascular coagulation [Recovered/Resolved]
  - Hepatic function abnormal [Recovered/Resolved]
  - Alanine aminotransferase increased [Recovering/Resolving]

NARRATIVE: CASE EVENT DATE: 20140217
